FAERS Safety Report 21474252 (Version 2)
Quarter: 2022Q4

REPORT INFORMATION
  Report Type: Report from Study
  Country: US (occurrence: US)
  Receive Date: 20221018
  Receipt Date: 20221110
  Transmission Date: 20230113
  Serious: Yes (Other)
  Sender: FDA-Public Use
  Company Number: US-NOVARTISTESTPH-NVSC2022US234138

PATIENT
  Sex: Female

DRUGS (2)
  1. COSENTYX [Suspect]
     Active Substance: SECUKINUMAB
     Indication: Psoriasis
     Dosage: UNK
     Route: 065
  2. COSENTYX [Suspect]
     Active Substance: SECUKINUMAB
     Indication: Psoriatic arthropathy

REACTIONS (8)
  - Psoriatic arthropathy [Unknown]
  - Illness [Unknown]
  - Dyspnoea [Unknown]
  - Psoriasis [Unknown]
  - Respiratory disorder [Unknown]
  - Gastric disorder [Unknown]
  - Pyrexia [Unknown]
  - Inflammation [Not Recovered/Not Resolved]
